FAERS Safety Report 21255990 (Version 3)
Quarter: 2022Q3

REPORT INFORMATION
  Report Type: Report from Study
  Country: BR (occurrence: BR)
  Receive Date: 20220825
  Receipt Date: 20220929
  Transmission Date: 20221026
  Serious: Yes (Other)
  Sender: FDA-Public Use
  Company Number: BR-ABBVIE-22K-020-4516250-00

PATIENT
  Sex: Female
  Weight: 99 kg

DRUGS (1)
  1. SKYRIZI [Suspect]
     Active Substance: RISANKIZUMAB-RZAA
     Indication: Psoriasis
     Route: 058
     Dates: start: 2021

REACTIONS (3)
  - Breast mass [Recovering/Resolving]
  - Breast pain [Recovered/Resolved]
  - Weight decreased [Unknown]
